FAERS Safety Report 9463115 (Version 3)
Quarter: 2013Q3

REPORT INFORMATION
  Report Type: Report from Study
  Country: DE (occurrence: DE)
  Receive Date: 20130816
  Receipt Date: 20130911
  Transmission Date: 20140515
  Serious: Yes (Other)
  Sender: FDA-Public Use
  Company Number: DE-B.I. PHARMACEUTICALS,INC./RIDGEFIELD-2013-BI-24566DE

PATIENT
  Age: 66 Year
  Sex: Male
  Weight: 87 kg

DRUGS (4)
  1. MICARDIS [Suspect]
     Dosage: 3 ANZ
     Route: 048
     Dates: start: 20130810
  2. CARMEN [Suspect]
     Route: 048
     Dates: start: 20130810
  3. TOREM [Suspect]
     Route: 048
     Dates: start: 20130810
  4. ALLOPURINOL [Suspect]
     Route: 048
     Dates: start: 20130810

REACTIONS (1)
  - Accidental exposure to product [Unknown]
